FAERS Safety Report 16666660 (Version 1)
Quarter: 2019Q3

REPORT INFORMATION
  Report Type: Spontaneous
  Country: TR (occurrence: TR)
  Receive Date: 20190805
  Receipt Date: 20190805
  Transmission Date: 20191004
  Serious: Yes (Death, Life-Threatening, Hospitalization)
  Sender: FDA-Public Use
  Company Number: TR-SCIEGEN PHARMACEUTICALS INC-2019SCILIT00230

PATIENT
  Age: 69 Year
  Sex: Female

DRUGS (3)
  1. ATORVASTATIN CALCIUM. [Suspect]
     Active Substance: ATORVASTATIN CALCIUM
  2. DOPAMINE [Interacting]
     Active Substance: DOPAMINE HYDROCHLORIDE
  3. NOREPINEPHRINE. [Interacting]
     Active Substance: NOREPINEPHRINE

REACTIONS (3)
  - Product use in unapproved indication [None]
  - Rhabdomyolysis [Not Recovered/Not Resolved]
  - Multiple organ dysfunction syndrome [Fatal]
